FAERS Safety Report 5885073-1 (Version None)
Quarter: 2008Q3

REPORT INFORMATION
  Report Type: 
  Country: None (occurrence: None)
  Receive Date: 20080916
  Receipt Date: 20080908
  Transmission Date: 20090109
  Serious: Yes (Hospitalization)
  Sender: FDA-Public Use
  Company Number: JP-ASTRAZENECA-2008AP07144

PATIENT
  Age: 83 Year
  Sex: Female

DRUGS (1)
  1. PULMICORT TURBUHALER 200 MICRO G [Suspect]
     Indication: ASTHMA
     Route: 055

REACTIONS (6)
  - BLOOD URINE PRESENT [None]
  - DECREASED APPETITE [None]
  - HYPOALBUMINAEMIA [None]
  - LEUKOCYTOCLASTIC VASCULITIS [None]
  - MALAISE [None]
  - NEPHROTIC SYNDROME [None]
